FAERS Safety Report 21741277 (Version 1)
Quarter: 2022Q4

REPORT INFORMATION
  Report Type: Spontaneous
  Country: US (occurrence: US)
  Receive Date: 20221216
  Receipt Date: 20221216
  Transmission Date: 20230113
  Serious: No
  Sender: FDA-Public Use
  Company Number: US-PFIZER INC-PV202200124568

PATIENT
  Age: 83 Year
  Sex: Female

DRUGS (1)
  1. IBRANCE [Suspect]
     Active Substance: PALBOCICLIB
     Dosage: 125 MG

REACTIONS (6)
  - Neoplasm progression [Unknown]
  - Nail bed inflammation [Unknown]
  - Onychomadesis [Unknown]
  - Abdominal pain upper [Unknown]
  - Feeling cold [Unknown]
  - Fatigue [Unknown]
